FAERS Safety Report 9725990 (Version 1)
Quarter: 2013Q4

REPORT INFORMATION
  Report Type: Spontaneous
  Country: SZ (occurrence: None)
  Receive Date: 20131118
  Receipt Date: 20131118
  Transmission Date: 20140711
  Serious: Yes (Other)
  Sender: FDA-Public Use
  Company Number: 2012034289

PATIENT
  Age: 62 Year
  Sex: Male

DRUGS (3)
  1. PRIVIGEN [Suspect]
     Indication: CHRONIC INFLAMMATORY DEMYELINATING POLYRADICULONEUROPATHY
     Dosage: 20 G QD, 20G VIAL, INFUSION SPEED:  100ML/HR (50/70/90/110 ML/HR, SIC!),
     Route: 042
     Dates: start: 20121212, end: 20121212
  2. PRIVIGEN [Suspect]
     Indication: POLYNEUROPATHY
     Dosage: 20 G QD, 20G VIAL, INFUSION SPEED:  100ML/HR (50/70/90/110 ML/HR, SIC!),
     Route: 042
     Dates: start: 20121212, end: 20121212
  3. VITAMIN B12 NOS (VITAMIN B12 NOS)? [Concomitant]

REACTIONS (2)
  - Back pain [None]
  - Off label use [None]
